FAERS Safety Report 5023302-7 (Version None)
Quarter: 2006Q2

REPORT INFORMATION
  Report Type: 
  Country: None (occurrence: None)
  Receive Date: 20060606
  Receipt Date: 20060519
  Transmission Date: 20061013
  Serious: Yes (Hospitalization)
  Sender: FDA-Public Use
  Company Number: 225867

PATIENT
  Age: 33 Year
  Sex: Female

DRUGS (2)
  1. AVASTIN [Suspect]
     Indication: COLORECTAL CANCER METASTATIC
  2. XELODA [Suspect]
     Indication: COLORECTAL CANCER METASTATIC

REACTIONS (2)
  - PAIN [None]
  - PERICARDITIS [None]
